FAERS Safety Report 18089168 (Version 2)
Quarter: 2020Q3

REPORT INFORMATION
  Report Type: Spontaneous
  Country: IT (occurrence: IT)
  Receive Date: 20200729
  Receipt Date: 20200929
  Transmission Date: 20201103
  Serious: Yes (Hospitalization, Disabling, Other)
  Sender: FDA-Public Use
  Company Number: IT-009507513-2007ITA010738

PATIENT
  Age: 20 Year
  Sex: Male
  Weight: 67 kg

DRUGS (1)
  1. PROPECIA [Suspect]
     Active Substance: FINASTERIDE
     Indication: ANDROGENETIC ALOPECIA
     Dosage: UNK
     Route: 048
     Dates: start: 20140923, end: 20141123

REACTIONS (69)
  - Phimosis [Unknown]
  - Drug ineffective [Unknown]
  - Decreased appetite [Unknown]
  - Dehydration [Unknown]
  - Persistent depressive disorder [Unknown]
  - Dysmorphophobia [Unknown]
  - Tachycardia [Unknown]
  - Colitis [Unknown]
  - Cortisol free urine increased [Unknown]
  - Stress [Unknown]
  - Depression [Unknown]
  - Helicobacter gastritis [Unknown]
  - Nutritional condition abnormal [Unknown]
  - Abdominal distension [Unknown]
  - Blood calcium increased [Unknown]
  - Incontinence [Unknown]
  - Polydipsia [Unknown]
  - Dihydrotestosterone increased [Unknown]
  - Cardiac disorder [Unknown]
  - Libido decreased [Unknown]
  - Post 5-alpha-reductase inhibitor syndrome [Not Recovered/Not Resolved]
  - Altered state of consciousness [Unknown]
  - Cognitive disorder [Unknown]
  - Pain [Unknown]
  - Vitamin C decreased [Unknown]
  - Thirst [Unknown]
  - Night blindness [Unknown]
  - Abdominal pain lower [Unknown]
  - Abdominal pain [Unknown]
  - Tremor [Unknown]
  - Back pain [Unknown]
  - Abnormal faeces [Unknown]
  - Muscle atrophy [Unknown]
  - Chest discomfort [Unknown]
  - Agitation [Unknown]
  - Vitamin D decreased [Unknown]
  - Cortisol increased [Unknown]
  - Mucosal dryness [Unknown]
  - Lipoatrophy [Unknown]
  - Organic acid analysis abnormal [Unknown]
  - Oligospermia [Unknown]
  - Memory impairment [Unknown]
  - Gastrooesophageal reflux disease [Unknown]
  - Dyspnoea [Unknown]
  - Dissociation [Unknown]
  - Citrobacter test positive [Unknown]
  - Dry mouth [Unknown]
  - Pyroglutamate increased [Unknown]
  - Polyuria [Unknown]
  - Malaise [Unknown]
  - Depressed mood [Unknown]
  - Addison^s disease [Unknown]
  - Chest pain [Unknown]
  - Tetrahydrocortisol urine increased [Unknown]
  - Bacteroides test positive [Unknown]
  - Dysbiosis [Unknown]
  - Genital pain [Unknown]
  - Sexual dysfunction [Unknown]
  - Pneumonia klebsiella [Unknown]
  - Adverse drug reaction [Unknown]
  - Perineal pain [Unknown]
  - Faecal calprotectin increased [Unknown]
  - Helicobacter test positive [Unknown]
  - Proteus test positive [Unknown]
  - Aeromonas test positive [Unknown]
  - Oestriol decreased [Unknown]
  - Heart rate abnormal [Unknown]
  - Pollakiuria [Unknown]
  - Saliva testosterone increased [Unknown]

NARRATIVE: CASE EVENT DATE: 2014
